FAERS Safety Report 12654868 (Version 1)
Quarter: 2016Q3

REPORT INFORMATION
  Report Type: Spontaneous
  Country: CN (occurrence: CN)
  Receive Date: 20160816
  Receipt Date: 20160816
  Transmission Date: 20161109
  Serious: Yes (Death, Hospitalization, Disabling)
  Sender: FDA-Public Use
  Company Number: CN-PFIZER INC-2016383953

PATIENT
  Age: 33 Year
  Sex: Male
  Weight: 65 kg

DRUGS (7)
  1. ALUMINUM PHOSPHATE [Suspect]
     Active Substance: ALUMINUM PHOSPHATE
     Indication: RASH
     Dosage: 20 G, 2X/DAY
     Route: 048
     Dates: start: 20160321, end: 20160414
  2. SOLU-MEDROL [Suspect]
     Active Substance: METHYLPREDNISOLONE SODIUM SUCCINATE
     Indication: RASH
     Dosage: 40 MG, 1X/DAY
     Route: 041
     Dates: start: 20160321, end: 20160418
  3. CHLORPHENIRAMINE /00072501/ [Suspect]
     Active Substance: CHLORPHENIRAMINE
     Indication: RASH
     Dosage: 4 MG, 3X/DAY
     Route: 048
     Dates: start: 20160321, end: 20160406
  4. OMEPRAZOLE SODIUM [Suspect]
     Active Substance: OMEPRAZOLE SODIUM
     Indication: RASH
     Dosage: 40 MG, 1X/DAY
     Route: 041
     Dates: start: 20160321, end: 20160405
  5. SODIUM CHLORIDE. [Suspect]
     Active Substance: SODIUM CHLORIDE
     Indication: RASH
     Dosage: 100 ML, 1X/DAY
     Route: 041
     Dates: start: 20160321, end: 20160405
  6. CLARITYNE [Suspect]
     Active Substance: LORATADINE
     Indication: RASH
     Dosage: 10 MG, 1X/DAY
     Route: 048
     Dates: start: 20160321, end: 20160406
  7. ETIMICIN SULFATE [Suspect]
     Active Substance: ETIMICIN SULFATE
     Indication: RASH
     Dosage: 0.4 G, 1X/DAY
     Dates: start: 20160322, end: 20160418

REACTIONS (2)
  - Transaminases abnormal [Fatal]
  - Cardiomyopathy [Recovered/Resolved with Sequelae]

NARRATIVE: CASE EVENT DATE: 20160330
